FAERS Safety Report 15991299 (Version 1)
Quarter: 2019Q1

REPORT INFORMATION
  Report Type: Spontaneous
  Country: IT (occurrence: IT)
  Receive Date: 20190221
  Receipt Date: 20190221
  Transmission Date: 20190418
  Serious: Yes (Other)
  Sender: FDA-Public Use
  Company Number: PHHY2019IT040052

PATIENT
  Age: 59 Year
  Sex: Male

DRUGS (4)
  1. LEVODOPA/CARBIDOPA/ENTACAPONE TEVA [Suspect]
     Active Substance: CARBIDOPA\ENTACAPONE\LEVODOPA
     Dosage: UNK (100/25/200 MG)
     Route: 065
  2. LEVODOPA/CARBIDOPA/ENTACAPONE MYLAN [Suspect]
     Active Substance: CARBIDOPA\ENTACAPONE\LEVODOPA
     Indication: PARKINSON^S DISEASE
     Dosage: UNK (125/31.25/200 MG)
     Route: 065
  3. LEVODOPA/CARBIDOPA/ENTACAPONE TEVA [Suspect]
     Active Substance: CARBIDOPA\ENTACAPONE\LEVODOPA
     Indication: PARKINSON^S DISEASE
     Dosage: UNK (125/31.25/200 MG)
     Route: 065
  4. ENTACAPONE+LEVODOPA+CARBIDOPA [Suspect]
     Active Substance: CARBIDOPA\ENTACAPONE\LEVODOPA
     Indication: PARKINSON^S DISEASE
     Dosage: 5 MG, QD
     Route: 048

REACTIONS (2)
  - Neuromuscular blockade [Unknown]
  - On and off phenomenon [Unknown]
